FAERS Safety Report 8365340-2 (Version None)
Quarter: 2012Q2

REPORT INFORMATION
  Report Type: 
  Country: None (occurrence: None)
  Receive Date: 20120516
  Receipt Date: 20120509
  Transmission Date: 20120825
  Serious: Yes (Other)
  Sender: FDA-Public Use
  Company Number: US-ROXANE LABORATORIES, INC.-2012-RO-01205RO

PATIENT
  Sex: Female
  Weight: 66 kg

DRUGS (14)
  1. METHADONE HCL [Suspect]
     Indication: BACK DISORDER
     Dosage: 280 MG
     Route: 048
     Dates: start: 19990101
  2. ACTIQ [Suspect]
     Indication: BACK DISORDER
     Dosage: 800 MCG
     Route: 002
  3. ALBUTEROL [Concomitant]
     Indication: ASTHMA
  4. ZIPSOR [Concomitant]
     Dosage: 50 MG
     Route: 048
  5. MONTELUKAST [Concomitant]
     Indication: ASTHMA
     Dosage: 10 MG
     Route: 048
  6. METHADONE HCL [Suspect]
     Indication: PAIN MANAGEMENT
  7. METHADONE HCL [Suspect]
     Indication: NECK INJURY
  8. ALPRAZOLAM [Concomitant]
     Dosage: 2 MG
     Route: 048
  9. LEVOTHYROXINE SODIUM [Concomitant]
     Dosage: 0.2 MG
     Route: 048
  10. BUDESONIDE W/ FUMORTEROL FUMARATE [Concomitant]
     Indication: ASTHMA
  11. ACTIQ [Suspect]
     Indication: PAIN MANAGEMENT
  12. PREGABALIN [Concomitant]
     Dosage: 75 MG
     Route: 048
  13. ESOMEPRAZOLE MAGNESIUM [Concomitant]
     Dosage: 40 MG
     Route: 048
  14. ACTIQ [Suspect]
     Indication: NECK INJURY

REACTIONS (3)
  - WITHDRAWAL SYNDROME [None]
  - INCOHERENT [None]
  - PYREXIA [None]
